FAERS Safety Report 20883709 (Version 1)
Quarter: 2022Q2

REPORT INFORMATION
  Report Type: Spontaneous
  Country: US (occurrence: US)
  Receive Date: 20220527
  Receipt Date: 20220527
  Transmission Date: 20220721
  Serious: Yes (Hospitalization)
  Sender: FDA-Public Use
  Company Number: US-CIPLA LTD.-2022US03267

PATIENT

DRUGS (4)
  1. OLANZAPINE [Interacting]
     Active Substance: OLANZAPINE
     Indication: Agitation
     Dosage: 10 MILLIGRAM, UNK
     Route: 065
  2. DROPERIDOL [Interacting]
     Active Substance: DROPERIDOL
     Indication: Agitation
     Dosage: 1.25 MILLIGRAM, UNK
     Route: 065
  3. DROPERIDOL [Interacting]
     Active Substance: DROPERIDOL
     Dosage: 5 MILLIGRAM, UNK
     Route: 065
  4. LORAZEPAM [Concomitant]
     Active Substance: LORAZEPAM
     Indication: Agitation
     Dosage: 2 MILLIGRAM, UNK
     Route: 065

REACTIONS (2)
  - Drug interaction [Unknown]
  - Extrapyramidal disorder [Recovering/Resolving]
